FAERS Safety Report 7833967-X (Version None)
Quarter: 2011Q4

REPORT INFORMATION
  Report Type: 
  Country: None (occurrence: None)
  Receive Date: 20111024
  Receipt Date: 20111013
  Transmission Date: 20120403
  Serious: Yes (Hospitalization)
  Sender: FDA-Public Use
  Company Number: US-JNJFOC-20110902404

PATIENT
  Sex: Male
  Weight: 37.2 kg

DRUGS (9)
  1. PRILOSEC [Concomitant]
  2. PREDNISONE [Concomitant]
  3. ATIVAN [Concomitant]
  4. TYLENOL-500 [Concomitant]
  5. CLONAZEPAM [Concomitant]
  6. ANTIBIOTICS [Concomitant]
     Indication: INFLAMMATORY BOWEL DISEASE
  7. ZYRTEC [Concomitant]
  8. REMICADE [Suspect]
     Indication: CROHN'S DISEASE
     Route: 042
     Dates: start: 20100823
  9. REMICADE [Suspect]
     Route: 042
     Dates: start: 20110820

REACTIONS (1)
  - CROHN'S DISEASE [None]
